FAERS Safety Report 6422178-0 (Version None)
Quarter: 2009Q4

REPORT INFORMATION
  Report Type: 
  Country: None (occurrence: None)
  Receive Date: 20091030
  Receipt Date: 20091019
  Transmission Date: 20100525
  Serious: Yes (Other)
  Sender: FDA-Public Use
  Company Number: PHHY2009AU43247

PATIENT
  Sex: Female

DRUGS (2)
  1. GLEEVEC [Suspect]
     Indication: CHRONIC MYELOID LEUKAEMIA
     Dosage: 400 MG, UNK
     Route: 048
     Dates: start: 20090916, end: 20091003
  2. GLEEVEC [Suspect]
     Dosage: 300 MG, UNK
     Route: 048
     Dates: start: 20091010

REACTIONS (6)
  - ARTHRALGIA [None]
  - COUGH [None]
  - HYPOAESTHESIA [None]
  - NAIL DISCOLOURATION [None]
  - PARAESTHESIA [None]
  - PLATELET COUNT DECREASED [None]
